FAERS Safety Report 15083222 (Version 1)
Quarter: 2018Q3

REPORT INFORMATION
  Report Type: Spontaneous
  Country: US (occurrence: US)
  Receive Date: 20180628
  Receipt Date: 20180628
  Transmission Date: 20181010
  Serious: No
  Sender: FDA-Public Use
  Company Number: US-LNK INTERNATIONAL, INC.-2050127

PATIENT
  Age: 56 Year
  Sex: Female

DRUGS (1)
  1. BISACODYL 5MG E.C.S.C. TABLETS [Suspect]
     Active Substance: BISACODYL
     Indication: CONSTIPATION

REACTIONS (3)
  - Dizziness [None]
  - Chest discomfort [None]
  - Palpitations [None]
